FAERS Safety Report 25737083 (Version 1)
Quarter: 2025Q3

REPORT INFORMATION
  Report Type: Spontaneous
  Country: US (occurrence: US)
  Receive Date: 20250828
  Receipt Date: 20250828
  Transmission Date: 20251021
  Serious: Yes (Other)
  Sender: ELI LILLY AND COMPANY
  Company Number: US-ELI_LILLY_AND_COMPANY-US202508024027

PATIENT
  Age: 36 Year
  Sex: Female
  Weight: 68.9 kg

DRUGS (1)
  1. HUMALOG [Suspect]
     Active Substance: INSULIN LISPRO
     Indication: Product used for unknown indication
     Route: 065

REACTIONS (5)
  - Loss of consciousness [Unknown]
  - Blood glucose increased [Recovered/Resolved]
  - Feeling hot [Unknown]
  - Fatigue [Unknown]
  - Lethargy [Unknown]

NARRATIVE: CASE EVENT DATE: 20250717
